FAERS Safety Report 13603909 (Version 2)
Quarter: 2017Q2

REPORT INFORMATION
  Report Type: Spontaneous
  Country: ES (occurrence: ES)
  Receive Date: 20170602
  Receipt Date: 20170607
  Transmission Date: 20170830
  Serious: Yes (Other)
  Sender: FDA-Public Use
  Company Number: ES-VIFOR (INTERNATIONAL) INC.-VIT-2017-05971

PATIENT
  Age: 60 Year
  Sex: Male
  Weight: 51 kg

DRUGS (12)
  1. VELPHORO [Suspect]
     Active Substance: FERRIC OXYHYDROXIDE
     Indication: PRODUCT USED FOR UNKNOWN INDICATION
     Dosage: 3 TABLETS
     Route: 048
     Dates: start: 20170301
  2. LOSARTAN. [Concomitant]
     Active Substance: LOSARTAN
     Route: 048
  3. HIDRAPRESS [Concomitant]
     Route: 048
  4. DOXAZOSIN MESILATE [Concomitant]
     Active Substance: DOXAZOSIN MESYLATE
     Route: 048
  5. FUROSEMIDE. [Concomitant]
     Active Substance: FUROSEMIDE
     Route: 048
  6. OMEPRAZOLE. [Concomitant]
     Active Substance: OMEPRAZOLE
     Route: 048
  7. CALCIUM POLYSTYRENE SULFONATE [Concomitant]
     Active Substance: CALCIUM POLYSTYRENE SULFONATE
     Route: 048
  8. DEPRAX [Concomitant]
     Active Substance: TRAZODONE HYDROCHLORIDE
     Route: 048
  9. ACETYLSALICYLIC ACID [Concomitant]
     Active Substance: ASPIRIN
     Route: 048
  10. TENORMIN [Concomitant]
     Active Substance: ATENOLOL
     Route: 048
  11. ARTEDIL [Concomitant]
     Active Substance: MANIDIPINE HYDROCHLORIDE
     Route: 048
  12. ATORVASTATIN [Concomitant]
     Active Substance: ATORVASTATIN
     Route: 048

REACTIONS (1)
  - Polycythaemia [Unknown]

NARRATIVE: CASE EVENT DATE: 20170316
